FAERS Safety Report 5302511-3 (Version None)
Quarter: 2007Q1

REPORT INFORMATION
  Report Type: 
  Country: None (occurrence: None)
  Receive Date: 20070201
  Receipt Date: 20061128
  Transmission Date: 20070707
  Serious: No
  Sender: FDA-Public Use
  Company Number: 2006PV026024

PATIENT
  Age: 61 Year
  Sex: Female
  Weight: 93.2142 kg

DRUGS (7)
  1. BYETTA [Suspect]
     Indication: GLUCOSE TOLERANCE IMPAIRED
     Dosage: 5 MCG; BID; SC
     Route: 058
     Dates: start: 20061106
  2. BYETTA [Suspect]
     Indication: INSULIN RESISTANCE
     Dosage: 5 MCG; BID; SC
     Route: 058
     Dates: start: 20061106
  3. POTASSIUM ACETATE [Concomitant]
  4. LISINOPRIL [Concomitant]
  5. ACE INHIBITOR NOS [Concomitant]
  6. METAMUCIL-2 [Concomitant]
  7. ASPIRIN [Concomitant]

REACTIONS (15)
  - BLOOD GLUCOSE DECREASED [None]
  - CHANGE OF BOWEL HABIT [None]
  - COLD SWEAT [None]
  - DIARRHOEA [None]
  - DIZZINESS [None]
  - DYSPEPSIA [None]
  - ERUCTATION [None]
  - FLATULENCE [None]
  - HYPERHIDROSIS [None]
  - INFLUENZA LIKE ILLNESS [None]
  - INJECTION SITE BRUISING [None]
  - INJECTION SITE PUSTULE [None]
  - INJECTION SITE URTICARIA [None]
  - NAUSEA [None]
  - WEIGHT DECREASED [None]
